FAERS Safety Report 18179837 (Version 1)
Quarter: 2020Q3

REPORT INFORMATION
  Report Type: Spontaneous
  Country: MY (occurrence: MY)
  Receive Date: 20200821
  Receipt Date: 20200821
  Transmission Date: 20201103
  Serious: Yes (Death, Life-Threatening, Hospitalization, Other)
  Sender: FDA-Public Use
  Company Number: MY-ALKEM LABORATORIES LIMITED-MY-ALKEM-2020-05022

PATIENT
  Age: 41 Year
  Sex: Female

DRUGS (3)
  1. AZATHIOPRINE. [Suspect]
     Active Substance: AZATHIOPRINE
     Indication: IGA NEPHROPATHY
     Dosage: UNK
     Route: 065
  2. MYCOPHENOLATE MOFETIL. [Suspect]
     Active Substance: MYCOPHENOLATE MOFETIL
     Indication: IGA NEPHROPATHY
     Dosage: UNK
     Route: 065
  3. PREDNISOLONE. [Suspect]
     Active Substance: PREDNISOLONE
     Indication: IGA NEPHROPATHY
     Dosage: UNK
     Route: 065

REACTIONS (4)
  - Haemophagocytic lymphohistiocytosis [Unknown]
  - Multiple organ dysfunction syndrome [Fatal]
  - Transaminases increased [Unknown]
  - Histoplasmosis [Unknown]
